FAERS Safety Report 24109262 (Version 1)
Quarter: 2024Q3

REPORT INFORMATION
  Report Type: Spontaneous
  Country: CN (occurrence: CN)
  Receive Date: 20240718
  Receipt Date: 20240718
  Transmission Date: 20241017
  Serious: Yes (Other)
  Sender: BAXTER
  Company Number: None

PATIENT
  Age: 9 Year
  Sex: Male
  Weight: 35 kg

DRUGS (5)
  1. CYCLOPHOSPHAMIDE [Suspect]
     Active Substance: CYCLOPHOSPHAMIDE
     Indication: Infection
     Dosage: 1.17 G, ONE TIME IN ONE DAY, ALONG WITH 0.38 G MESNA SODIUM INJECTION, DILUTED WITH 100 ML OF 0.9% S
     Route: 041
     Dates: start: 20240703, end: 20240703
  2. CYCLOPHOSPHAMIDE [Suspect]
     Active Substance: CYCLOPHOSPHAMIDE
     Indication: Pyrexia
  3. SODIUM CHLORIDE [Suspect]
     Active Substance: SODIUM CHLORIDE
     Indication: Medication dilution
     Dosage: 100 ML, ONE TIME IN ONE DAY, STRENGTH: 0.9%, DOSAGE FORM: INJECTION, USED TO DILUTE 1.17 G OF CYCLOP
     Route: 041
     Dates: start: 20240703, end: 20240703
  4. MESNA [Suspect]
     Active Substance: MESNA
     Indication: Infection
     Dosage: 0.38 G, QD, ALONG WITH 1.17 G CYCLOPHOSPHAMIDE, DILUTED WITH 100 ML OF 0.9% SODIUM CHLORIDE, DOSAGE
     Route: 041
     Dates: start: 20240703, end: 20240703
  5. MESNA [Suspect]
     Active Substance: MESNA
     Indication: Pyrexia

REACTIONS (3)
  - Gastrointestinal disorder [Unknown]
  - Vomiting [Recovering/Resolving]
  - Abdominal pain [Recovering/Resolving]

NARRATIVE: CASE EVENT DATE: 20240703
